FAERS Safety Report 12599344 (Version 2)
Quarter: 2016Q3

REPORT INFORMATION
  Report Type: Spontaneous
  Country: US (occurrence: US)
  Receive Date: 20160727
  Receipt Date: 20160804
  Transmission Date: 20161109
  Serious: Yes (Other)
  Sender: FDA-Public Use
  Company Number: US-TEVA-562364USA

PATIENT
  Age: 66 Year
  Sex: Female

DRUGS (3)
  1. LEVETIRACETAM. [Concomitant]
     Active Substance: LEVETIRACETAM
     Indication: EPILEPSY
  2. PREGABALIN. [Concomitant]
     Active Substance: PREGABALIN
     Indication: EPILEPSY
  3. LAMOTRIGINE. [Suspect]
     Active Substance: LAMOTRIGINE
     Indication: EPILEPSY
     Dosage: 600MG
     Route: 065

REACTIONS (8)
  - Confusional state [Unknown]
  - Pyrexia [Unknown]
  - Vomiting [Unknown]
  - Toxicity to various agents [Recovered/Resolved]
  - Diarrhoea [Unknown]
  - Headache [Unknown]
  - Delirium [Unknown]
  - Agitation [Unknown]
